FAERS Safety Report 12976763 (Version 9)
Quarter: 2019Q4

REPORT INFORMATION
  Report Type: Report from Study
  Country: CN (occurrence: CN)
  Receive Date: 20161128
  Receipt Date: 20191219
  Transmission Date: 20200122
  Serious: Yes (Hospitalization)
  Sender: FDA-Public Use
  Company Number: PHHY2016CN142630

PATIENT
  Age: 48 Year
  Sex: Male
  Weight: 72 kg

DRUGS (92)
  1. BASILIXIMAB [Suspect]
     Active Substance: BASILIXIMAB
     Indication: IMMUNOSUPPRESSANT DRUG THERAPY
  2. TACROLIMUS. [Suspect]
     Active Substance: TACROLIMUS
     Dosage: 4.5 MG, QD
     Route: 065
     Dates: start: 20160728, end: 20160804
  3. TACROLIMUS. [Suspect]
     Active Substance: TACROLIMUS
     Dosage: 2.5 MG, QD
     Route: 065
     Dates: start: 20161229, end: 20170223
  4. ALANYL GLUTAMINE [Concomitant]
     Active Substance: ALANYL GLUTAMINE
     Dosage: 2000 MG, QD
     Route: 042
     Dates: start: 20161014, end: 20161014
  5. FAT EMULSION NOS [Concomitant]
     Active Substance: EGG PHOSPHOLIPIDS\SAFFLOWER OIL\SOYBEAN OIL
     Indication: SUPPLEMENTATION THERAPY
     Dosage: 250 ML, QD
     Route: 042
     Dates: start: 20161014, end: 20161025
  6. COMPOUND LIQUORICE [Concomitant]
     Indication: UPPER RESPIRATORY TRACT INFECTION
     Dosage: 10 ML, TID
     Route: 048
     Dates: start: 20170505, end: 20170509
  7. HEPARIN SODIUM. [Concomitant]
     Active Substance: HEPARIN SODIUM
     Indication: PRODUCT USED FOR UNKNOWN INDICATION
     Dosage: 1.25 WU, QD
     Route: 042
     Dates: start: 20160614, end: 20160614
  8. CALCITRIOL. [Concomitant]
     Active Substance: CALCITRIOL
     Indication: PRODUCT USED FOR UNKNOWN INDICATION
     Dosage: 2.5 UG, QD
     Route: 048
     Dates: start: 20161021, end: 20161021
  9. LINEZOLID. [Concomitant]
     Active Substance: LINEZOLID
     Dosage: 600 MG, BID
     Route: 048
     Dates: start: 20160629
  10. PHOSPHOCREATINE SODIUM [Concomitant]
     Active Substance: PHOSPHOCREATINE SODIUM
     Indication: PRODUCT USED FOR UNKNOWN INDICATION
     Dosage: 2000 MG, QD
     Route: 042
     Dates: start: 20160614, end: 20160624
  11. POTASSIUM CHLORIDE. [Concomitant]
     Active Substance: POTASSIUM CHLORIDE
     Dosage: 2000 MG, TID, SUSTAINED RELEASE TABLETS
     Route: 048
     Dates: start: 20160620, end: 20160620
  12. PREDNISONE. [Suspect]
     Active Substance: PREDNISONE
     Dosage: 40 MG, QD
     Route: 065
     Dates: start: 20160618, end: 20160618
  13. PREDNISONE. [Suspect]
     Active Substance: PREDNISONE
     Dosage: 20 MG, QD
     Route: 065
     Dates: start: 20160620, end: 20160620
  14. TACROLIMUS. [Suspect]
     Active Substance: TACROLIMUS
     Dosage: 4 MG, QD
     Route: 065
     Dates: start: 20161108, end: 20161201
  15. TACROLIMUS. [Suspect]
     Active Substance: TACROLIMUS
     Dosage: 3 MG, QD
     Route: 065
     Dates: start: 20170413
  16. TACROLIMUS. [Suspect]
     Active Substance: TACROLIMUS
     Dosage: 2 MG, QD
     Route: 065
     Dates: start: 20170310, end: 20170413
  17. LANSOPRAZOLE. [Concomitant]
     Active Substance: LANSOPRAZOLE
     Dosage: 60 MG, QD, POWDER FOR INJECTION
     Route: 042
     Dates: start: 20160703, end: 20160707
  18. LANSOPRAZOLE. [Concomitant]
     Active Substance: LANSOPRAZOLE
     Dosage: 30 MG, BID, POWDER FOR INJECTION
     Route: 042
     Dates: start: 20161028, end: 20161107
  19. SODIUM BICARBONATE. [Concomitant]
     Active Substance: SODIUM BICARBONATE
     Indication: SUPPLEMENTATION THERAPY
     Dosage: 1500 MG, TID
     Route: 048
     Dates: start: 20160630
  20. ALANYL GLUTAMINE [Concomitant]
     Active Substance: ALANYL GLUTAMINE
     Dosage: 2000 MG, QD
     Route: 042
     Dates: start: 20160616, end: 20160623
  21. CALCITRIOL. [Concomitant]
     Active Substance: CALCITRIOL
     Dosage: 2.5 UG, QD
     Route: 048
     Dates: start: 20161031, end: 20161031
  22. PHENTOLAMINE MESYLATE. [Concomitant]
     Active Substance: PHENTOLAMINE MESYLATE
     Indication: POLYURIA
     Dosage: 10 MG, QD
     Route: 042
     Dates: start: 20160615, end: 20160616
  23. AMPHOMYCIN [Concomitant]
     Indication: INFECTION PROPHYLAXIS
     Dosage: 30 MG, QD
     Route: 042
     Dates: start: 20160614, end: 20160705
  24. PRAZOSIN. [Concomitant]
     Active Substance: PRAZOSIN
     Indication: PRODUCT USED FOR UNKNOWN INDICATION
     Route: 065
  25. MEROPENEM. [Concomitant]
     Active Substance: MEROPENEM
     Indication: INFECTION PROPHYLAXIS
     Dosage: 500 MG, TID
     Route: 042
     Dates: start: 20160614, end: 20160620
  26. MYFORTIC [Suspect]
     Active Substance: MYCOPHENOLATE SODIUM
     Dosage: 360 MG, QD
     Route: 048
     Dates: start: 20161214, end: 20170119
  27. MYFORTIC [Suspect]
     Active Substance: MYCOPHENOLATE SODIUM
     Dosage: 1080 MG, QD
     Route: 048
     Dates: start: 20170413
  28. PREDNISONE. [Suspect]
     Active Substance: PREDNISONE
     Indication: IMMUNOSUPPRESSANT DRUG THERAPY
     Dosage: 50 MG, QD
     Route: 065
     Dates: start: 20160617, end: 20160617
  29. PREDNISONE. [Suspect]
     Active Substance: PREDNISONE
     Dosage: 20 MG, QD
     Route: 065
     Dates: start: 20161112, end: 20161117
  30. TACROLIMUS. [Suspect]
     Active Substance: TACROLIMUS
     Dosage: 1.5 MG, QD
     Route: 065
     Dates: start: 20160718, end: 20160718
  31. LANSOPRAZOLE. [Concomitant]
     Active Substance: LANSOPRAZOLE
     Indication: PROPHYLAXIS
     Dosage: 60 MG, BID, POWDER FOR INJECTION
     Route: 042
     Dates: start: 20161012, end: 20161027
  32. HUMAN ALBUMIN [Concomitant]
     Active Substance: ALBUMIN HUMAN
     Dosage: 100 ML, QD
     Route: 042
     Dates: start: 20160615, end: 20160621
  33. SODIUM BICARBONATE. [Concomitant]
     Active Substance: SODIUM BICARBONATE
     Dosage: 1000 MG, QD
     Route: 042
     Dates: start: 20160716, end: 20160716
  34. CALTRATE [Concomitant]
     Active Substance: CALCIUM CARBONATE
     Indication: SUPPLEMENTATION THERAPY
     Dosage: 600 MG, QD
     Route: 042
     Dates: start: 20161013, end: 20161111
  35. MULTIVITAMINS [Concomitant]
     Active Substance: VITAMINS
     Indication: SUPPLEMENTATION THERAPY
     Dosage: 2 OT, QD
     Route: 042
     Dates: start: 20160614, end: 20160618
  36. NOVOLIN 30R [Concomitant]
     Active Substance: INSULIN HUMAN
     Dosage: 12 IU, BEFORE THE SUPPER
     Route: 058
     Dates: start: 20161024, end: 20161111
  37. NOVOLIN 30R [Concomitant]
     Active Substance: INSULIN HUMAN
     Dosage: 14 IU, BEFORE THE SUPPER
     Route: 058
     Dates: start: 20161030, end: 20161111
  38. MICAFUNGIN SODIUM [Concomitant]
     Active Substance: MICAFUNGIN SODIUM
     Indication: PRODUCT USED FOR UNKNOWN INDICATION
     Dosage: 50 MG, QD
     Route: 042
     Dates: start: 20160701, end: 20160701
  39. PREDNISONE. [Suspect]
     Active Substance: PREDNISONE
     Dosage: 30 MG, QD
     Route: 065
     Dates: start: 20160619, end: 20160619
  40. TACROLIMUS. [Suspect]
     Active Substance: TACROLIMUS
     Dosage: 5.5 MG, QD
     Route: 065
     Dates: start: 20160705, end: 20160711
  41. TACROLIMUS. [Suspect]
     Active Substance: TACROLIMUS
     Dosage: 3 MG, QD
     Route: 065
     Dates: start: 20170224, end: 20170309
  42. LANSOPRAZOLE. [Concomitant]
     Active Substance: LANSOPRAZOLE
     Dosage: 60 MG, BID, POWDER FOR INJECTION
     Route: 042
     Dates: start: 20160614, end: 20160623
  43. HUMAN ALBUMIN [Concomitant]
     Active Substance: ALBUMIN HUMAN
     Dosage: 50 ML, BID
     Route: 042
     Dates: start: 20160622, end: 20160623
  44. SODIUM BICARBONATE. [Concomitant]
     Active Substance: SODIUM BICARBONATE
     Indication: PROPHYLAXIS
     Dosage: 1500 MG, QD
     Route: 048
     Dates: start: 20161013
  45. CALCITRIOL. [Concomitant]
     Active Substance: CALCITRIOL
     Indication: OSTEOPOROSIS PROPHYLAXIS
     Dosage: 0.25 UG, QD
     Route: 048
     Dates: start: 20161013, end: 20161111
  46. CALCITRIOL. [Concomitant]
     Active Substance: CALCITRIOL
     Indication: SUPPLEMENTATION THERAPY
  47. OMEPRAZOLE. [Concomitant]
     Active Substance: OMEPRAZOLE
     Indication: GASTRITIS PROPHYLAXIS
     Dosage: 10 MG, BID
     Route: 048
     Dates: start: 20160625, end: 20160703
  48. PHENOBARBITAL. [Concomitant]
     Active Substance: PHENOBARBITAL
     Indication: PRODUCT USED FOR UNKNOWN INDICATION
     Dosage: 100 MG, QD
     Route: 030
     Dates: start: 20160613, end: 20160613
  49. POTASSIUM CHLORIDE. [Concomitant]
     Active Substance: POTASSIUM CHLORIDE
     Indication: MINERAL SUPPLEMENTATION
     Dosage: 30 ML, QD, 10%
     Route: 048
     Dates: start: 20160621, end: 20160621
  50. POTASSIUM CHLORIDE. [Concomitant]
     Active Substance: POTASSIUM CHLORIDE
     Dosage: 30 ML, BID, 5%
     Route: 048
     Dates: start: 20160619, end: 20160619
  51. MYFORTIC [Suspect]
     Active Substance: MYCOPHENOLATE SODIUM
     Dosage: 720 MG, QD
     Route: 048
     Dates: start: 20170120, end: 20170412
  52. TACROLIMUS. [Suspect]
     Active Substance: TACROLIMUS
     Dosage: 5.5 MG, QD
     Route: 065
     Dates: start: 20160811, end: 20160818
  53. TACROLIMUS. [Suspect]
     Active Substance: TACROLIMUS
     Dosage: 4 MG, QD
     Route: 065
     Dates: start: 20160718, end: 20160728
  54. AMINO ACIDS NOS [Concomitant]
     Active Substance: AMINO ACIDS, SOURCE UNSPECIFIED
     Dosage: 250 ML, QD
     Route: 042
     Dates: start: 20160623, end: 20160623
  55. NOVOLIN 30R [Concomitant]
     Active Substance: INSULIN HUMAN
     Dosage: 16 IU, BEFORE THE SUPPER
     Route: 058
     Dates: start: 20161025, end: 20161111
  56. LINEZOLID. [Concomitant]
     Active Substance: LINEZOLID
     Indication: INFECTION PROPHYLAXIS
     Dosage: 600 MG, BID
     Route: 048
     Dates: start: 20160614, end: 20160630
  57. MAGNESIUM CARBONAT [Concomitant]
     Indication: GASTRITIS PROPHYLAXIS
     Dosage: 1000 MG, TID
     Route: 048
     Dates: start: 20161105
  58. POTASSIUM CHLORIDE. [Concomitant]
     Active Substance: POTASSIUM CHLORIDE
     Dosage: 30 ML, QD, 5%
     Route: 048
     Dates: start: 20160618, end: 20160618
  59. MYFORTIC [Suspect]
     Active Substance: MYCOPHENOLATE SODIUM
     Indication: IMMUNOSUPPRESSANT DRUG THERAPY
     Dosage: 1080 MG, QD
     Route: 048
     Dates: start: 20160624, end: 20161012
  60. MYFORTIC [Suspect]
     Active Substance: MYCOPHENOLATE SODIUM
     Dosage: 1080 MG, QD
     Route: 065
     Dates: start: 20160717
  61. METHYLPREDNISOLONE. [Suspect]
     Active Substance: METHYLPREDNISOLONE
     Indication: IMMUNOSUPPRESSANT DRUG THERAPY
     Dosage: 500 MG, QD
     Route: 065
     Dates: start: 20160614, end: 20160615
  62. TACROLIMUS. [Suspect]
     Active Substance: TACROLIMUS
     Dosage: 5 MG, QD
     Route: 065
     Dates: start: 20160818, end: 20160825
  63. TACROLIMUS. [Suspect]
     Active Substance: TACROLIMUS
     Dosage: 3.5 MG, QD
     Route: 065
     Dates: start: 20160825, end: 20160831
  64. HUMAN ALBUMIN [Concomitant]
     Active Substance: ALBUMIN HUMAN
     Indication: NITROGEN BALANCE NEGATIVE
     Dosage: 50 ML, BID
     Route: 065
     Dates: start: 20161012, end: 20161025
  65. HUMAN ALBUMIN [Concomitant]
     Active Substance: ALBUMIN HUMAN
     Indication: SUPPLEMENTATION THERAPY
     Dosage: 100 ML, BID
     Route: 042
     Dates: start: 20160614, end: 20160621
  66. AMINO ACID [Concomitant]
     Active Substance: AMINO ACIDS, SOURCE UNSPECIFIED
     Indication: SUPPLEMENTATION THERAPY
     Dosage: 250 MG, QD
     Route: 042
     Dates: start: 20160614, end: 20160618
  67. ACARBOSE. [Concomitant]
     Active Substance: ACARBOSE
     Indication: PRODUCT USED FOR UNKNOWN INDICATION
     Dosage: 50 MG, TID
     Route: 048
     Dates: start: 20161105
  68. ALANYL GLUTAMINE [Concomitant]
     Active Substance: ALANYL GLUTAMINE
     Indication: SUPPLEMENTATION THERAPY
     Dosage: 2000 MG, QD
     Route: 042
     Dates: start: 20160614, end: 20160618
  69. FEBUXOSTAT. [Concomitant]
     Active Substance: FEBUXOSTAT
     Indication: BLOOD URIC ACID ABNORMAL
     Dosage: 40 MG, QD
     Route: 048
     Dates: start: 20160709, end: 20160717
  70. MULTIVITAMINS [Concomitant]
     Active Substance: VITAMINS
     Dosage: 2 OT, QD
     Route: 042
     Dates: start: 20160619, end: 20160623
  71. RIBOFLAVIN SODIUM PHOSPHATE [Concomitant]
     Active Substance: RIBOFLAVIN 5^-PHOSPHATE SODIUM
     Indication: PROPHYLAXIS
     Dosage: 20 MG, QD
     Route: 042
     Dates: start: 20160614, end: 20160625
  72. PREDNISONE. [Suspect]
     Active Substance: PREDNISONE
     Dosage: 10 MG, QD
     Route: 065
     Dates: start: 20160629, end: 20161111
  73. TACROLIMUS. [Suspect]
     Active Substance: TACROLIMUS
     Dosage: 6 MG, QD
     Route: 065
     Dates: start: 20160621, end: 20160704
  74. TACROLIMUS. [Suspect]
     Active Substance: TACROLIMUS
     Dosage: 4.5 MG, QD
     Route: 065
     Dates: start: 20160712, end: 20160714
  75. TACROLIMUS. [Suspect]
     Active Substance: TACROLIMUS
     Dosage: 4 MG, QD
     Route: 065
     Dates: start: 20160715, end: 20160717
  76. LANSOPRAZOLE. [Concomitant]
     Active Substance: LANSOPRAZOLE
     Dosage: 60 MG, QD, POWDER FOR INJECTION
     Route: 042
     Dates: start: 20160624, end: 20160624
  77. SCOPOLAMINE [Concomitant]
     Active Substance: SCOPOLAMINE
     Indication: PROPHYLAXIS
     Dosage: 300 MG, QD
     Route: 030
     Dates: start: 20160613, end: 20160613
  78. TALCID [Concomitant]
     Active Substance: HYDROTALCITE
     Indication: PROPHYLAXIS
     Dosage: 1000 MG, TID
     Route: 048
     Dates: start: 20161105
  79. MYFORTIC [Suspect]
     Active Substance: MYCOPHENOLATE SODIUM
     Indication: RENAL TRANSPLANT
     Dosage: 1440 MG, QD
     Route: 048
     Dates: start: 20160614, end: 20160623
  80. BASILIXIMAB [Suspect]
     Active Substance: BASILIXIMAB
     Indication: RENAL TRANSPLANT
     Dosage: 20 MG, QD
     Route: 065
     Dates: start: 20160614, end: 20160614
  81. TACROLIMUS. [Suspect]
     Active Substance: TACROLIMUS
     Indication: IMMUNOSUPPRESSANT DRUG THERAPY
     Dosage: 7.5 MG, QD
     Route: 065
     Dates: start: 20160616, end: 20160620
  82. TACROLIMUS. [Suspect]
     Active Substance: TACROLIMUS
     Dosage: 3 MG, QD
     Route: 065
     Dates: start: 20160831, end: 20160915
  83. TACROLIMUS. [Suspect]
     Active Substance: TACROLIMUS
     Dosage: 3 MG, QD
     Route: 065
     Dates: start: 20161212, end: 20161228
  84. LANSOPRAZOLE. [Concomitant]
     Active Substance: LANSOPRAZOLE
     Dosage: 60 MG, QD, POWDER FOR INJECTION
     Route: 042
     Dates: start: 20160615, end: 20160623
  85. LANSOPRAZOLE. [Concomitant]
     Active Substance: LANSOPRAZOLE
     Dosage: 60 MG, QD, POWDER FOR INJECTION
     Route: 042
     Dates: start: 20170506, end: 20170509
  86. HUMAN ALBUMIN [Concomitant]
     Active Substance: ALBUMIN HUMAN
     Dosage: 50 ML, QD
     Route: 042
     Dates: start: 20161026, end: 20161027
  87. SODIUM BICARBONATE. [Concomitant]
     Active Substance: SODIUM BICARBONATE
     Dosage: 1000 MG, QD
     Route: 048
     Dates: start: 20160708, end: 20160717
  88. AMINO ACIDS NOS [Concomitant]
     Active Substance: AMINO ACIDS, SOURCE UNSPECIFIED
     Indication: SUPPLEMENTATION THERAPY
     Dosage: 250 ML, QD
     Route: 042
     Dates: start: 20160616, end: 20160623
  89. DOPAMINE [Concomitant]
     Active Substance: DOPAMINE HYDROCHLORIDE
     Indication: POLYURIA
     Dosage: 10 MG, QD
     Route: 042
     Dates: start: 20160615, end: 20160616
  90. NOVOLIN 30R [Concomitant]
     Active Substance: INSULIN HUMAN
     Indication: PRODUCT USED FOR UNKNOWN INDICATION
     Dosage: 12 IU, BEFORE THE SUPPER
     Route: 058
     Dates: start: 20161024, end: 20161024
  91. NOVOLIN 30R [Concomitant]
     Active Substance: INSULIN HUMAN
     Dosage: 12 IU, BEFORE THE SUPPER
     Route: 058
     Dates: start: 20161024, end: 20161029
  92. POTASSIUM CHLORIDE. [Concomitant]
     Active Substance: POTASSIUM CHLORIDE
     Indication: SUPPLEMENTATION THERAPY
     Dosage: 1000 MG, TID, SUSTAINED RELEASE TABLETS
     Route: 048
     Dates: start: 20160618, end: 20160619

REACTIONS (10)
  - Pneumonia [Not Recovered/Not Resolved]
  - Pericardial fibrosis [Recovered/Resolved]
  - Incision site pain [Recovering/Resolving]
  - Pleural effusion [Recovered/Resolved]
  - Red blood cells urine positive [Unknown]
  - Interstitial lung disease [Recovered/Resolved]
  - Nasopharyngitis [Recovered/Resolved]
  - Protein urine present [Unknown]
  - Blood creatinine increased [Recovered/Resolved]
  - Apoptosis [Recovered/Resolved]

NARRATIVE: CASE EVENT DATE: 20160614
